FAERS Safety Report 6410396-7 (Version None)
Quarter: 2009Q4

REPORT INFORMATION
  Report Type: 
  Country: None (occurrence: None)
  Receive Date: 20091022
  Receipt Date: 20091020
  Transmission Date: 20100525
  Serious: Yes (Death)
  Sender: FDA-Public Use
  Company Number: PHHY2009AR45042

PATIENT
  Sex: Female

DRUGS (1)
  1. EXELON [Suspect]
     Indication: SENILE DEMENTIA
     Dosage: 1.5 MG 1 TABLET DAILY
     Route: 048
     Dates: start: 20070101

REACTIONS (1)
  - DEATH [None]
